FAERS Safety Report 14898004 (Version 2)
Quarter: 2018Q2

REPORT INFORMATION
  Report Type: Spontaneous
  Country: US (occurrence: US)
  Receive Date: 20180515
  Receipt Date: 20180517
  Transmission Date: 20180711
  Serious: No
  Sender: FDA-Public Use
  Company Number: US-SA-2017SA246608

PATIENT
  Sex: Female

DRUGS (7)
  1. TOUJEO [Suspect]
     Active Substance: INSULIN GLARGINE
     Dosage: DOSE:37 UNIT(S)
     Route: 051
  2. LANTUS SOLOSTAR [Concomitant]
     Active Substance: INSULIN GLARGINE
     Dosage: DOSE:33 UNIT(S)
     Route: 065
  3. GLIPIZIDE. [Concomitant]
     Active Substance: GLIPIZIDE
  4. SOLOSTAR [Suspect]
     Active Substance: DEVICE
  5. SOLOSTAR [Concomitant]
     Active Substance: DEVICE
  6. SOLOSTAR [Suspect]
     Active Substance: DEVICE
  7. TOUJEO [Suspect]
     Active Substance: INSULIN GLARGINE
     Dosage: DOSE:27 UNIT(S)
     Route: 051

REACTIONS (2)
  - Intentional product misuse [Unknown]
  - Blood glucose increased [Unknown]
